FAERS Safety Report 8126080-8 (Version None)
Quarter: 2012Q1

REPORT INFORMATION
  Report Type: 
  Country: None (occurrence: None)
  Receive Date: 20120209
  Receipt Date: 20120202
  Transmission Date: 20120608
  Serious: Yes (Other)
  Sender: FDA-Public Use
  Company Number: PHHY2011FR108796

PATIENT
  Sex: Female
  Weight: 50 kg

DRUGS (7)
  1. ZOMETA [Suspect]
     Indication: MULTIPLE MYELOMA
     Dosage: UNK UKN, UNK
     Dates: start: 20110501
  2. MORPHINE SULFATE [Concomitant]
     Dosage: 40 MG, BID
  3. IMOVANE [Concomitant]
  4. DEXAMETHASONE [Concomitant]
     Indication: CHEMOTHERAPY
  5. ZOLPIDEM [Concomitant]
  6. VELCADE [Concomitant]
     Indication: CHEMOTHERAPY
  7. ZOMETA [Suspect]
     Dosage: UNK UKN, UNK
     Dates: start: 20111101

REACTIONS (14)
  - OSTEOLYSIS [None]
  - GENERAL PHYSICAL HEALTH DETERIORATION [None]
  - BONE LESION [None]
  - NEOPLASM MALIGNANT [None]
  - CHEST PAIN [None]
  - NEOPLASM PROGRESSION [None]
  - DRUG INEFFECTIVE [None]
  - CONFUSIONAL STATE [None]
  - HAEMOGLOBIN DECREASED [None]
  - MYELOMA RECURRENCE [None]
  - WEIGHT DECREASED [None]
  - ABDOMINAL PAIN UPPER [None]
  - HYPERCALCAEMIA [None]
  - DECREASED APPETITE [None]
